APPROVED DRUG PRODUCT: FIORINAL
Active Ingredient: ASPIRIN; BUTALBITAL; CAFFEINE
Strength: 325MG;50MG;40MG **Federal Register determination that product was not discontinued or withdrawn for safety or effectiveness reasons**
Dosage Form/Route: CAPSULE;ORAL
Application: N017534 | Product #005
Applicant: ALLERGAN SALES LLC
Approved: Apr 16, 1986 | RLD: Yes | RS: No | Type: DISCN